FAERS Safety Report 15808669 (Version 2)
Quarter: 2019Q1

REPORT INFORMATION
  Report Type: Report from Study
  Country: DE (occurrence: DE)
  Receive Date: 20190110
  Receipt Date: 20190314
  Transmission Date: 20190417
  Serious: No
  Sender: FDA-Public Use
  Company Number: DE-ROCHE-2243075

PATIENT
  Age: 56 Year
  Sex: Female

DRUGS (2)
  1. OCREVUS [Suspect]
     Active Substance: OCRELIZUMAB
     Route: 065
     Dates: start: 201901
  2. OCREVUS [Suspect]
     Active Substance: OCRELIZUMAB
     Indication: PRIMARY PROGRESSIVE MULTIPLE SCLEROSIS
     Route: 065
     Dates: start: 201812, end: 201812

REACTIONS (2)
  - Influenza like illness [Unknown]
  - Infection susceptibility increased [Not Recovered/Not Resolved]

NARRATIVE: CASE EVENT DATE: 201812
